FAERS Safety Report 5426070-X (Version None)
Quarter: 2007Q3

REPORT INFORMATION
  Report Type: 
  Country: None (occurrence: None)
  Receive Date: 20070824
  Receipt Date: 20070824
  Transmission Date: 20080115
  Serious: No
  Sender: FDA-Public Use
  Company Number: None

PATIENT
  Sex: Female
  Weight: 147.8726 kg

DRUGS (1)
  1. OXYTROL [Suspect]
     Indication: URGE INCONTINENCE
     Dosage: ONE PATCH TWICE WEEKLY TRANSDERMAL
     Route: 062
     Dates: start: 20070808, end: 20070823

REACTIONS (3)
  - DRUG INEFFECTIVE [None]
  - PHARMACEUTICAL PRODUCT COMPLAINT [None]
  - PHARMACEUTICAL PRODUCT COUNTERFEIT [None]
